FAERS Safety Report 7020874-8 (Version None)
Quarter: 2010Q3

REPORT INFORMATION
  Report Type: 
  Country: None (occurrence: None)
  Receive Date: 20100929
  Receipt Date: 20100923
  Transmission Date: 20110219
  Serious: Yes (Hospitalization)
  Sender: FDA-Public Use
  Company Number: IT-PFIZER INC-2010096676

PATIENT
  Age: 48 Year
  Sex: Male

DRUGS (8)
  1. MEDROL [Suspect]
     Indication: ANKYLOSING SPONDYLITIS
     Dosage: 4 MG, 1X/DAY
     Route: 048
     Dates: start: 20000101
  2. METHOTREXATE [Suspect]
     Indication: ANKYLOSING SPONDYLITIS
     Dosage: 10 MG, WEEKLY
     Route: 030
     Dates: start: 20090101
  3. HUMIRA [Suspect]
     Indication: ANKYLOSING SPONDYLITIS
     Dosage: 40 MG, EVERY 2 WEEKS
     Route: 058
     Dates: start: 20100501, end: 20100615
  4. TRIATEC [Concomitant]
     Dosage: 2.5 MG, 1X/DAY
  5. CARDURA [Concomitant]
     Dosage: 2 MG, 1X/DAY
  6. CARDIOASPIRINA [Concomitant]
     Dosage: 100 MG, 1X/DAY
  7. LEDERFOLIN [Concomitant]
     Dosage: 7.5 MG, WEEKLY
  8. LANSOPRAZOLE [Concomitant]
     Dosage: 30 MG, 1X/DAY

REACTIONS (1)
  - CUTANEOUS LEISHMANIASIS [None]
